FAERS Safety Report 6818635-5 (Version None)
Quarter: 2010Q3

REPORT INFORMATION
  Report Type: 
  Country: None (occurrence: None)
  Receive Date: 20100706
  Receipt Date: 20090227
  Transmission Date: 20110219
  Serious: No
  Sender: FDA-Public Use
  Company Number: US-PFIZER INC-2009162535

PATIENT
  Sex: Male
  Weight: 63.5 kg

DRUGS (5)
  1. AZITHROMYCIN [Suspect]
     Indication: LOWER RESPIRATORY TRACT INFECTION
     Dosage: 250 MG, 1X/DAY
     Dates: start: 20090124
  2. ELAVIL [Concomitant]
     Dosage: UNK
  3. KLONOPIN [Concomitant]
     Dosage: UNK
  4. MUCINEX [Concomitant]
     Dosage: UNK
  5. CHERATUSSIN [Concomitant]
     Dosage: UNK

REACTIONS (1)
  - SKIN LACERATION [None]
